APPROVED DRUG PRODUCT: DIETHYLPROPION HYDROCHLORIDE
Active Ingredient: DIETHYLPROPION HYDROCHLORIDE
Strength: 25MG
Dosage Form/Route: TABLET;ORAL
Application: A088642 | Product #001
Applicant: TEVA PHARMACEUTICALS USA INC
Approved: Sep 20, 1984 | RLD: No | RS: No | Type: DISCN